FAERS Safety Report 9416839 (Version 1)
Quarter: 2013Q3

REPORT INFORMATION
  Report Type: Spontaneous
  Country: US (occurrence: US)
  Receive Date: 20130724
  Receipt Date: 20130724
  Transmission Date: 20140515
  Serious: No
  Sender: FDA-Public Use
  Company Number: US-PFIZER INC-2013212367

PATIENT
  Age: 58 Year
  Sex: Female
  Weight: 132 kg

DRUGS (14)
  1. GENOTROPIN [Suspect]
     Indication: GROWTH HORMONE DEFICIENCY
     Dosage: 2 MG, 1X/DAY, EVERY NIGHT AT BEDTIME
     Route: 058
  2. CRESTOR [Concomitant]
     Dosage: UNK
  3. VAGIFEM [Concomitant]
     Dosage: 10 UG, UNK
  4. VICTOZA [Concomitant]
     Dosage: 18MG/3ML, UNK
  5. GLUMETZA [Concomitant]
     Dosage: 500 MG, UNK
  6. SYNTHROID [Concomitant]
     Dosage: 25 UG, UNK
  7. LOVAZA [Concomitant]
     Dosage: 1 G, UNK
  8. BENICAR [Concomitant]
     Dosage: 20 MG, UNK
  9. PROTONIX [Concomitant]
     Dosage: 20 MG, UNK
  10. KLOR-CON [Concomitant]
     Dosage: 8 TAB 8 MEQ, UNK
  11. LASIX [Concomitant]
     Dosage: 20 MG, UNK
  12. SINGULAIR [Concomitant]
     Dosage: 10 MG, UNK
  13. ZYRTEC [Concomitant]
     Dosage: 10 MG, UNK
  14. ASPIRIN [Concomitant]
     Dosage: 81 MG, UNK

REACTIONS (4)
  - Blood growth hormone increased [Unknown]
  - Myalgia [Unknown]
  - Arthralgia [Unknown]
  - Blood cholesterol decreased [Unknown]
